FAERS Safety Report 7228859-3 (Version None)
Quarter: 2011Q1

REPORT INFORMATION
  Report Type: 
  Country: None (occurrence: None)
  Receive Date: 20110117
  Receipt Date: 20110105
  Transmission Date: 20110831
  Serious: Yes (Hospitalization)
  Sender: FDA-Public Use
  Company Number: JP-ELI_LILLY_AND_COMPANY-JP201010001299

PATIENT
  Sex: Female
  Weight: 39.4 kg

DRUGS (4)
  1. EVISTA [Suspect]
     Indication: OSTEOPOROSIS POSTMENOPAUSAL
     Dosage: 60 MG, DAILY (1/D)
     Route: 048
     Dates: start: 20040528, end: 20100917
  2. TAKEPRON [Concomitant]
     Indication: REFLUX OESOPHAGITIS
     Dosage: 15 MG, DAILY (1/D)
     Route: 048
     Dates: start: 20040528, end: 20100917
  3. MEILAX [Concomitant]
     Indication: ANXIETY DISORDER
     Dosage: 2 MG, DAILY (1/D)
     Route: 048
     Dates: start: 20040528
  4. FAD [Concomitant]
     Indication: GLOSSITIS
     Dosage: 30 MG, DAILY (1/D)
     Route: 048
     Dates: start: 20040528, end: 20100917

REACTIONS (2)
  - PULMONARY HYPERTENSION [None]
  - PULMONARY EMBOLISM [None]
